FAERS Safety Report 15283409 (Version 1)
Quarter: 2018Q3

REPORT INFORMATION
  Report Type: Report from Study
  Country: US (occurrence: US)
  Receive Date: 20180816
  Receipt Date: 20180816
  Transmission Date: 20181010
  Serious: Yes (Other)
  Sender: FDA-Public Use
  Company Number: US-PHARMING-PHAUS2018000501

PATIENT

DRUGS (3)
  1. RUCONEST [Suspect]
     Active Substance: HUMAN C1-ESTERASE INHIBITOR
     Indication: PROPHYLAXIS
     Dosage: 4200 IU, EVERY 3 DAYS
     Route: 042
     Dates: start: 20180625
  2. RUCONEST [Suspect]
     Active Substance: HUMAN C1-ESTERASE INHIBITOR
     Dosage: 1 DF, SINGLE
     Route: 042
     Dates: start: 20180729, end: 20180729
  3. RUCONEST [Suspect]
     Active Substance: HUMAN C1-ESTERASE INHIBITOR
     Indication: HEREDITARY ANGIOEDEMA
     Dosage: 1 DF, SINGLE
     Route: 042
     Dates: start: 20180726, end: 20180726

REACTIONS (6)
  - Fear of injection [Unknown]
  - Condition aggravated [Unknown]
  - Chest injury [Recovered/Resolved]
  - Chest pain [Recovered/Resolved]
  - Chest discomfort [Unknown]
  - Off label use [Not Recovered/Not Resolved]

NARRATIVE: CASE EVENT DATE: 20180625
